FAERS Safety Report 12534963 (Version 1)
Quarter: 2016Q3

REPORT INFORMATION
  Report Type: Report from Study
  Country: US (occurrence: US)
  Receive Date: 20160707
  Receipt Date: 20160707
  Transmission Date: 20161109
  Serious: Yes (Other)
  Sender: FDA-Public Use
  Company Number: US-009507513-2005-130997-NL

PATIENT
  Sex: Female

DRUGS (4)
  1. MENOTROPINS [Suspect]
     Active Substance: MENOTROPINS
     Dosage: CONTINUING: UNK
  2. CLOMIPHENE CITRATE. [Suspect]
     Active Substance: CLOMIPHENE CITRATE
     Dosage: CONTINUING: UNK
  3. METRODIN [Suspect]
     Active Substance: UROFOLLITROPIN
     Dosage: CONTINUING: UNK
  4. HUMEGON [Suspect]
     Active Substance: MENOTROPINS
     Dosage: CONTINUING: UNK

REACTIONS (1)
  - Ovarian cancer [Unknown]
